FAERS Safety Report 8163898-X (Version None)
Quarter: 2012Q1

REPORT INFORMATION
  Report Type: 
  Country: None (occurrence: None)
  Receive Date: 20120224
  Receipt Date: 20120214
  Transmission Date: 20120608
  Serious: Yes (Other)
  Sender: FDA-Public Use
  Company Number: FR-EISAI INC-E3810-05317-SPO-FR

PATIENT
  Age: 66 Year
  Sex: Female

DRUGS (2)
  1. RABEPRAZOLE SODIUM [Suspect]
     Route: 065
     Dates: start: 20040101, end: 20111001
  2. OMEPRAZOLE [Concomitant]

REACTIONS (2)
  - HERNIA [None]
  - ADENOMATOUS POLYPOSIS COLI [None]
